FAERS Safety Report 6215974-6 (Version None)
Quarter: 2009Q2

REPORT INFORMATION
  Report Type: 
  Country: None (occurrence: None)
  Receive Date: 20090605
  Receipt Date: 20090602
  Transmission Date: 20091009
  Serious: Yes (Life-Threatening, Hospitalization)
  Sender: FDA-Public Use
  Company Number: GB-TEVA-196791ISR

PATIENT
  Age: 48 Year
  Sex: Male

DRUGS (2)
  1. BACLOFEN [Suspect]
  2. QUETIAPINE FUMARATE [Suspect]

REACTIONS (16)
  - AREFLEXIA [None]
  - COMA [None]
  - DIABETES INSIPIDUS [None]
  - ELECTROCARDIOGRAM QT PROLONGED [None]
  - HYPERAMYLASAEMIA [None]
  - HYPERTENSION [None]
  - HYPOTENSION [None]
  - HYPOTHERMIA [None]
  - HYPOTONIA [None]
  - HYPOXIA [None]
  - MUSCLE TWITCHING [None]
  - MYDRIASIS [None]
  - OVERDOSE [None]
  - PUPILLARY REFLEX IMPAIRED [None]
  - RESPIRATORY RATE DECREASED [None]
  - SINUS BRADYCARDIA [None]
